FAERS Safety Report 6883049-9 (Version None)
Quarter: 2010Q3

REPORT INFORMATION
  Report Type: 
  Country: None (occurrence: None)
  Receive Date: 20100729
  Receipt Date: 20100727
  Transmission Date: 20110219
  Serious: Yes (Life-Threatening, Hospitalization)
  Sender: FDA-Public Use
  Company Number: PH-SANOFI-AVENTIS-2010SA018535

PATIENT
  Sex: Male

DRUGS (3)
  1. GLIMEPIRIDE [Suspect]
     Dates: start: 20050301, end: 20100301
  2. BLINDED THERAPY [Suspect]
  3. METFORMIN HCL [Suspect]
     Dates: start: 20050301

REACTIONS (4)
  - CARDIAC ARREST [None]
  - HYPOGLYCAEMIC UNCONSCIOUSNESS [None]
  - LOSS OF CONSCIOUSNESS [None]
  - PNEUMONIA [None]
